FAERS Safety Report 5030407-3 (Version None)
Quarter: 2006Q2

REPORT INFORMATION
  Report Type: 
  Country: None (occurrence: None)
  Receive Date: 20060615
  Receipt Date: 20060602
  Transmission Date: 20061013
  Serious: Yes (Disabling, Other)
  Sender: FDA-Public Use
  Company Number: 001-0073-M0200081

PATIENT
  Sex: Female
  Weight: 48.9885 kg

DRUGS (6)
  1. DILANTIN [Suspect]
     Indication: EPILEPSY
     Dosage: ORAL; FROM CHILDHOOD TO COLLEGE
     Route: 048
  2. CELEBREX [Suspect]
     Indication: ARTHRITIS
     Dosage: ONE OR TWO TIMES DAILY (200 MG), ORAL
     Route: 048
     Dates: start: 20040101, end: 20050501
  3. DEPAKOTE [Suspect]
     Indication: EPILEPSY
     Dosage: ORAL
     Route: 048
  4. KEPPRA [Concomitant]
  5. DIAMOX [Concomitant]
  6. FELBATOL [Concomitant]

REACTIONS (12)
  - ARTHRITIS [None]
  - BONE DENSITY DECREASED [None]
  - BONE DISORDER [None]
  - HEADACHE [None]
  - NERVOUSNESS [None]
  - OSTEOARTHRITIS [None]
  - PAIN [None]
  - PALPITATIONS [None]
  - SURGERY [None]
  - TOOTH DISORDER [None]
  - WEIGHT FLUCTUATION [None]
  - WEIGHT INCREASED [None]
